FAERS Safety Report 9701070 (Version 1)
Quarter: 2013Q4

REPORT INFORMATION
  Report Type: Spontaneous
  Country: US (occurrence: None)
  Receive Date: 20131120
  Receipt Date: 20131120
  Transmission Date: 20140711
  Serious: No
  Sender: FDA-Public Use
  Company Number: None

PATIENT
  Age: 69 Year
  Sex: Female

DRUGS (1)
  1. ARIMIDEX [Suspect]
     Indication: BREAST CANCER
     Route: 048
     Dates: start: 20130629

REACTIONS (10)
  - Bone pain [None]
  - Weight increased [None]
  - Alopecia [None]
  - Fluid retention [None]
  - Cough [None]
  - Back pain [None]
  - Insomnia [None]
  - Mood altered [None]
  - Blood pressure increased [None]
  - Asthenia [None]
